FAERS Safety Report 5373934-1 (Version None)
Quarter: 2007Q2

REPORT INFORMATION
  Report Type: 
  Country: None (occurrence: None)
  Receive Date: 20070628
  Receipt Date: 20070615
  Transmission Date: 20071010
  Serious: Yes (Hospitalization, Other)
  Sender: FDA-Public Use
  Company Number: IT-ELI_LILLY_AND_COMPANY-IT200706005495

PATIENT
  Age: 25 Year
  Sex: Male

DRUGS (6)
  1. OLANZAPINE [Suspect]
     Dosage: 20 MG, DAILY (1/D)
     Route: 048
  2. OLANZAPINE [Suspect]
     Dosage: 10 MG, DAILY (1/D)
     Route: 048
  3. CLONAZEPAM [Concomitant]
     Dosage: 4.5 MG, DAILY (1/D)
     Route: 048
  4. HALOPERIDOL [Concomitant]
     Dosage: 12 MG, DAILY (1/D)
     Route: 030
  5. HALOPERIDOL [Concomitant]
     Dosage: 3 MG, DAILY (1/D)
     Route: 048
  6. LORAZEPAM [Concomitant]
     Dosage: 10 MG, DAILY (1/D)
     Route: 030

REACTIONS (3)
  - BLOOD CREATINE PHOSPHOKINASE INCREASED [None]
  - PYREXIA [None]
  - STAPHYLOCOCCAL INFECTION [None]
